FAERS Safety Report 5675572-X (Version None)
Quarter: 2008Q1

REPORT INFORMATION
  Report Type: 
  Country: None (occurrence: None)
  Receive Date: 20080321
  Receipt Date: 20080312
  Transmission Date: 20080703
  Serious: Yes (Hospitalization)
  Sender: FDA-Public Use
  Company Number: FR-JNJFOC-20080202661

PATIENT
  Age: 55 Year
  Sex: Female

DRUGS (5)
  1. TAVANIC [Suspect]
     Indication: PNEUMONIA
     Route: 048
  2. AERIUS [Concomitant]
     Indication: ASTHMA
     Route: 048
  3. SERETIDE [Concomitant]
     Indication: ASTHMA
     Route: 055
  4. LEXOMIL [Concomitant]
     Indication: DEPRESSION
     Route: 048
  5. MOCLAMINE [Concomitant]
     Indication: DEPRESSION
     Route: 048

REACTIONS (2)
  - AMNESIA [None]
  - CONVULSION [None]
